FAERS Safety Report 26068196 (Version 1)
Quarter: 2025Q4

REPORT INFORMATION
  Report Type: Spontaneous
  Country: GB (occurrence: GB)
  Receive Date: 20251120
  Receipt Date: 20251120
  Transmission Date: 20260118
  Serious: Yes (Life-Threatening, Hospitalization, Disabling, Other)
  Sender: AUROBINDO
  Company Number: GB-MHRA-WEBRADR-202511100112229940-NSVHT

PATIENT
  Sex: Male
  Weight: 91 kg

DRUGS (5)
  1. DIAZEPAM [Suspect]
     Active Substance: DIAZEPAM
     Indication: Agitation
     Dosage: 15 MILLIGRAM
  2. EPILIM [Suspect]
     Active Substance: VALPROATE SODIUM
     Indication: Epilepsy
     Dosage: 2500 MILLIGRAM
     Route: 065
     Dates: start: 20250902, end: 20251110
  3. EPILIM [Suspect]
     Active Substance: VALPROATE SODIUM
     Indication: Affective disorder
  4. BISOPROLOL [Concomitant]
     Active Substance: BISOPROLOL
     Indication: Atrial fibrillation
     Dosage: 3.75 MILLIGRAM, ONCE A DAY
     Route: 065
  5. BISOPROLOL [Concomitant]
     Active Substance: BISOPROLOL
     Indication: Tachycardia

REACTIONS (8)
  - Drug hypersensitivity [Not Recovered/Not Resolved]
  - Contraindicated product prescribed [Unknown]
  - Product prescribing issue [Unknown]
  - Seizure [Unknown]
  - Epistaxis [Unknown]
  - Aggression [Unknown]
  - Headache [Unknown]
  - Allergic reaction to excipient [Unknown]

NARRATIVE: CASE EVENT DATE: 20250902
